FAERS Safety Report 9220403 (Version 1)
Quarter: 2013Q1

REPORT INFORMATION
  Report Type: Spontaneous
  Country: US (occurrence: None)
  Receive Date: 20120831
  Receipt Date: 20120831
  Transmission Date: 20140127
  Serious: No
  Sender: FDA-Public Use
  Company Number: 1000030948

PATIENT
  Age: 71 Year
  Sex: Female

DRUGS (5)
  1. DALIRESP [Suspect]
     Indication: EMPHYSEMA
     Dosage: (250 MCG, 1 IN 1 D)
     Route: 048
     Dates: start: 201205, end: 201205
  2. ERYTHROMYCIN [Suspect]
     Route: 048
  3. BISOPROLOL (BISOPROLOL) (BISOPROLOL) [Concomitant]
  4. VITAMINS NOS (VITAMINS NOS) (VITAMINS NOS) [Concomitant]
  5. CLARITIN (LORATADINE) (LORATADINE) [Concomitant]

REACTIONS (4)
  - Tremor [None]
  - Muscular weakness [None]
  - Malaise [None]
  - Frequent bowel movements [None]
